FAERS Safety Report 9837197 (Version 1)
Quarter: 2013Q4

REPORT INFORMATION
  Report Type: Spontaneous
  Country: US (occurrence: None)
  Receive Date: 20131205
  Receipt Date: 20131205
  Transmission Date: 20140711
  Serious: Yes (Hospitalization)
  Sender: FDA-Public Use
  Company Number: 163-POMAL-13100225

PATIENT
  Age: 74 Year
  Sex: Male

DRUGS (1)
  1. POMALYST (POMALIDOMIDE) (2 MILLIGRAM, CAPSULES) [Suspect]
     Indication: PLASMA CELL MYELOMA
     Dosage: 14 IN 28 D
     Route: 048
     Dates: start: 20130829, end: 20130909

REACTIONS (3)
  - Infection [None]
  - Haemoglobin decreased [None]
  - Platelet count decreased [None]
